FAERS Safety Report 6266754-7 (Version None)
Quarter: 2009Q3

REPORT INFORMATION
  Report Type: 
  Country: None (occurrence: None)
  Receive Date: 20090714
  Receipt Date: 20070727
  Transmission Date: 20100115
  Serious: Yes (Hospitalization)
  Sender: FDA-Public Use
  Company Number: US-ASTRAZENECA-2007UW02043

PATIENT
  Age: 20006 Day
  Sex: Female
  Weight: 117.9 kg

DRUGS (33)
  1. SEROQUEL [Suspect]
     Indication: POST-TRAUMATIC STRESS DISORDER
     Dosage: 100-300 MG
     Route: 048
     Dates: start: 20001220
  2. SEROQUEL [Suspect]
     Indication: DEPRESSION
     Dosage: 100-300 MG
     Route: 048
     Dates: start: 20001220
  3. SEROQUEL [Suspect]
     Dosage: 100 MG TO 300 MG
     Route: 048
     Dates: start: 20010301
  4. SEROQUEL [Suspect]
     Dosage: 100 MG TO 300 MG
     Route: 048
     Dates: start: 20010301
  5. DEPAKOTE [Concomitant]
     Dates: start: 19991101, end: 20030901
  6. PAXIL [Concomitant]
     Route: 048
  7. PAXIL [Concomitant]
     Route: 048
  8. SINGULAIR [Concomitant]
     Route: 048
  9. DIOVAN [Concomitant]
     Route: 048
  10. DIOVAN [Concomitant]
     Route: 048
  11. TOPAMAX [Concomitant]
  12. ZESTRIL [Concomitant]
     Route: 048
  13. ZANAFLEX [Concomitant]
     Route: 048
  14. ZANAFLEX [Concomitant]
     Route: 048
  15. LORCET-HD [Concomitant]
     Route: 048
  16. LORCET-HD [Concomitant]
     Dosage: 10 MG - 650 MG
     Route: 048
  17. ALBUTEROL [Concomitant]
     Route: 045
  18. BENADRYL [Concomitant]
     Route: 048
  19. REMERON [Concomitant]
  20. ZANTAC [Concomitant]
  21. LASIX [Concomitant]
     Route: 048
  22. ACTOS [Concomitant]
     Route: 048
     Dates: end: 20030421
  23. ACTOS [Concomitant]
     Route: 048
     Dates: start: 20030524
  24. PREMARIN [Concomitant]
     Route: 048
  25. HYDROCODONE BITARTRATE [Concomitant]
     Dosage: 7.5 MG - 50 MG
     Route: 048
  26. BAYCOL [Concomitant]
     Route: 048
  27. METHOCARBAMOL [Concomitant]
  28. XANAX [Concomitant]
     Route: 048
  29. EFFEROX XR [Concomitant]
     Route: 048
     Dates: end: 20060617
  30. EFFEROX XR [Concomitant]
     Route: 048
     Dates: start: 20060705
  31. ATIVAN [Concomitant]
     Indication: DEPRESSION
  32. BUSPAR [Concomitant]
     Route: 048
  33. ZOLOFT [Concomitant]
     Indication: DEPRESSION
     Route: 048

REACTIONS (14)
  - ABDOMINAL PAIN UPPER [None]
  - ANGINA UNSTABLE [None]
  - BACK PAIN [None]
  - CHEST PAIN [None]
  - DIABETES MELLITUS [None]
  - DYSPNOEA [None]
  - INSOMNIA [None]
  - MUSCULOSKELETAL PAIN [None]
  - NECK PAIN [None]
  - PAIN [None]
  - RENAL COLIC [None]
  - SINUS DISORDER [None]
  - SLEEP APNOEA SYNDROME [None]
  - WEIGHT INCREASED [None]
